FAERS Safety Report 5268375-1 (Version None)
Quarter: 2007Q1

REPORT INFORMATION
  Report Type: 
  Country: None (occurrence: None)
  Receive Date: 20070313
  Receipt Date: 20070302
  Transmission Date: 20070707
  Serious: Yes (Hospitalization, Other)
  Sender: FDA-Public Use
  Company Number: 230419K07USA

PATIENT
  Age: 46 Year
  Sex: Female

DRUGS (1)
  1. REBIF [Suspect]
     Indication: MULTIPLE SCLEROSIS
     Dosage: 44 MCG, 3 IN 1 WEEKS, SUBCUTANEOUS
     Route: 058
     Dates: start: 20050511

REACTIONS (9)
  - ANAEMIA [None]
  - CONDITION AGGRAVATED [None]
  - GASTROINTESTINAL HAEMORRHAGE [None]
  - MULTIPLE SCLEROSIS [None]
  - PANCREATIC DISORDER [None]
  - PITUITARY TUMOUR [None]
  - RENAL FAILURE [None]
  - THYROID DISORDER [None]
  - VISUAL DISTURBANCE [None]
